FAERS Safety Report 15167681 (Version 1)
Quarter: 2018Q3

REPORT INFORMATION
  Report Type: Spontaneous
  Country: FI (occurrence: FI)
  Receive Date: 20180719
  Receipt Date: 20180719
  Transmission Date: 20181010
  Serious: Yes (Hospitalization)
  Sender: FDA-Public Use
  Company Number: FI-TEVA-2018-FI-928885

PATIENT
  Age: 57 Year
  Sex: Female

DRUGS (5)
  1. ORADEXON [Concomitant]
     Active Substance: DEXAMETHASONE
     Route: 042
     Dates: start: 20180604, end: 20180604
  2. CALCIUM FOLINATE [Concomitant]
     Active Substance: LEUCOVORIN CALCIUM
     Route: 042
     Dates: start: 20180604, end: 20180604
  3. OXALIPLATIN ACCORD [Suspect]
     Active Substance: OXALIPLATIN
     Dosage: 150,MG,X1
     Route: 042
     Dates: start: 20180604, end: 20180604
  4. PALONOSETRON. [Concomitant]
     Active Substance: PALONOSETRON HYDROCHLORIDE
     Route: 042
     Dates: start: 20180604, end: 20180604
  5. IRINOTECAN [Suspect]
     Active Substance: IRINOTECAN
     Route: 042
     Dates: start: 20180604, end: 20180604

REACTIONS (6)
  - Nausea [Recovered/Resolved]
  - Abdominal discomfort [Recovered/Resolved]
  - Tongue movement disturbance [Recovered/Resolved]
  - Cold sweat [Recovered/Resolved]
  - Dizziness [Recovered/Resolved]
  - Speech disorder [Recovered/Resolved]

NARRATIVE: CASE EVENT DATE: 20180604
